FAERS Safety Report 6208872-5 (Version None)
Quarter: 2009Q2

REPORT INFORMATION
  Report Type: 
  Country: None (occurrence: None)
  Receive Date: 20090529
  Receipt Date: 20090520
  Transmission Date: 20091009
  Serious: Yes (Other)
  Sender: FDA-Public Use
  Company Number: B0567729A

PATIENT
  Sex: Male

DRUGS (5)
  1. ALKERAN [Suspect]
     Indication: BONE MARROW CONDITIONING REGIMEN
     Dosage: 220MGM2 PER DAY
     Route: 042
     Dates: start: 20090301, end: 20090301
  2. FRAGMIN [Concomitant]
     Indication: PROPHYLAXIS
     Dosage: 6300U PER DAY
     Route: 042
     Dates: start: 20090224, end: 20090325
  3. PROGRAF [Concomitant]
     Indication: PROPHYLAXIS
     Dosage: 1.5MG PER DAY
     Route: 065
     Dates: start: 20090302, end: 20090325
  4. ALPROSTADIL ALFADEX [Concomitant]
     Indication: PROPHYLAXIS
     Dosage: 100MCG PER DAY
     Dates: start: 20090225, end: 20090305
  5. FLUDARA [Concomitant]
     Indication: BONE MARROW CONDITIONING REGIMEN
     Dosage: 46MG PER DAY
     Dates: start: 20090225, end: 20090301

REACTIONS (14)
  - ACTIVATED PARTIAL THROMBOPLASTIN TIME PROLONGED [None]
  - ALANINE AMINOTRANSFERASE INCREASED [None]
  - ASPARTATE AMINOTRANSFERASE INCREASED [None]
  - BLOOD LACTATE DEHYDROGENASE INCREASED [None]
  - FIBRIN D DIMER INCREASED [None]
  - HAEMOGLOBIN DECREASED [None]
  - HAEMORRHAGE SUBCUTANEOUS [None]
  - MUSCLE HAEMORRHAGE [None]
  - OEDEMA PERIPHERAL [None]
  - PLATELET COUNT DECREASED [None]
  - PROTHROMBIN TIME PROLONGED [None]
  - TENDERNESS [None]
  - VASCULITIS [None]
  - WHITE BLOOD CELL COUNT DECREASED [None]
